FAERS Safety Report 9528333 (Version 1)
Quarter: 2013Q3

REPORT INFORMATION
  Report Type: Report from Study
  Country: US (occurrence: US)
  Receive Date: 20130917
  Receipt Date: 20130917
  Transmission Date: 20140515
  Serious: Yes (Hospitalization, Other)
  Sender: FDA-Public Use
  Company Number: US-ROCHE-1276213

PATIENT
  Sex: Female

DRUGS (3)
  1. AVASTIN [Suspect]
     Indication: NON-SMALL CELL LUNG CANCER
     Route: 065
  2. TARCEVA [Suspect]
     Indication: NON-SMALL CELL LUNG CANCER
     Route: 065
  3. ALIMTA [Concomitant]

REACTIONS (5)
  - Infection [Unknown]
  - Disease progression [Unknown]
  - Lymphadenopathy [Unknown]
  - Myocardial infarction [Unknown]
  - Chronic obstructive pulmonary disease [Unknown]
